FAERS Safety Report 4312787-7 (Version None)
Quarter: 2004Q1

REPORT INFORMATION
  Report Type: 
  Country: None (occurrence: None)
  Receive Date: 20040304
  Receipt Date: 20040219
  Transmission Date: 20041129
  Serious: Yes (Hospitalization)
  Sender: FDA-Public Use
  Company Number: 2004194522FR

PATIENT
  Age: 72 Year
  Sex: Male

DRUGS (4)
  1. CELEBREX [Suspect]
     Indication: SCIATICA
  2. VOLTAREN [Suspect]
     Indication: SCIATICA
  3. DI-ANTALVIC (DEXTROPROPOXYPHENE HYDROCHLORIDE) [Suspect]
     Indication: SCIATICA
  4. EFFERALGAN CODEINE(EFFERALGAN CODEINE) [Suspect]
     Indication: SCIATICA

REACTIONS (5)
  - ACUTE GENERALISED EXANTHEMATOUS PUSTULOSIS [None]
  - CYTOLYTIC HEPATITIS [None]
  - HYPERTHERMIA [None]
  - INFLAMMATION [None]
  - SKIN TEST POSITIVE [None]
